FAERS Safety Report 10273288 (Version 1)
Quarter: 2014Q1

REPORT INFORMATION
  Report Type: Spontaneous
  Country: US (occurrence: None)
  Receive Date: 20140306
  Receipt Date: 20140306
  Transmission Date: 20141002
  Serious: Yes (Other)
  Sender: FDA-Public Use
  Company Number: 163-21880-13010593

PATIENT
  Age: 82 Year
  Sex: Male
  Weight: 48.54 kg

DRUGS (14)
  1. REVLIMID [Suspect]
     Indication: PLASMA CELL MYELOMA
     Dosage: 10 MG, 21 IN 28 D, PO 07/17/2007- UNKNOWN THERAPY DATE
     Route: 048
     Dates: start: 20070717
  2. DEXAMETHASONE (DEXAMETHASONE) (TABLETS) [Suspect]
     Indication: PRODUCT USED FOR UNKNOWN INDICATION
     Dosage: 4 MG , PRN , PO 12/ 2009 - UNKNOWN THERAPY DATES
     Route: 048
     Dates: start: 200912
  3. PROCRIT (ERYTHROPOIETIN) [Concomitant]
  4. ANTIEMETICS (ANTIEMETICS AND ANTINAUSEANTS) [Concomitant]
  5. ANALGESICS [Concomitant]
  6. LORTAB (VICODIN) [Concomitant]
  7. ASPIRIN (ACETYLSALIC ACID) [Concomitant]
  8. CENTRUM SILVER [Concomitant]
  9. COMPAZINE (PROCHLORPERAZINE EDISYLATE) [Concomitant]
  10. LEVOTHYROXINE [Concomitant]
  11. LASIX (FUROSEMIDE) [Concomitant]
  12. POTASSIUM CHLORIDE [Concomitant]
  13. FENTANYL [Concomitant]
  14. INFLUENZA INJECTION (INFLUENZA VACCINE) [Concomitant]

REACTIONS (3)
  - Renal failure chronic [None]
  - Diarrhoea [None]
  - Anaemia [None]
